FAERS Safety Report 5613758-0 (Version None)
Quarter: 2008Q1

REPORT INFORMATION
  Report Type: 
  Country: None (occurrence: None)
  Receive Date: 20080205
  Receipt Date: 20080122
  Transmission Date: 20080703
  Serious: Yes (Hospitalization)
  Sender: FDA-Public Use
  Company Number: IN-AMGEN-UK261831

PATIENT
  Age: 42 Year
  Weight: 78 kg

DRUGS (2)
  1. NEULASTIM [Suspect]
     Indication: CHEMOTHERAPY
     Route: 058
     Dates: start: 20080113
  2. CYTARABINE [Concomitant]
     Dates: start: 20080108, end: 20080112

REACTIONS (1)
  - FEBRILE NEUTROPENIA [None]
